FAERS Safety Report 18193517 (Version 1)
Quarter: 2020Q3

REPORT INFORMATION
  Report Type: Spontaneous
  Country: CA (occurrence: CA)
  Receive Date: 20200825
  Receipt Date: 20200825
  Transmission Date: 20201103
  Serious: Yes (Other)
  Sender: FDA-Public Use
  Company Number: CA-PFIZER INC-2020324083

PATIENT

DRUGS (17)
  1. CYCLOPHOSPHAMIDE. [Interacting]
     Active Substance: CYCLOPHOSPHAMIDE
     Indication: DIFFUSE LARGE B-CELL LYMPHOMA
     Dosage: UNK
  2. FOSAMPRENAVIR CALCIUM. [Interacting]
     Active Substance: FOSAMPRENAVIR CALCIUM
     Indication: HIV INFECTION
     Dosage: UNK
  3. EFAVIRENZ. [Interacting]
     Active Substance: EFAVIRENZ
     Indication: HIV INFECTION
     Dosage: UNK
  4. VINCRISTINE SULFATE. [Suspect]
     Active Substance: VINCRISTINE SULFATE
     Indication: DIFFUSE LARGE B-CELL LYMPHOMA
     Dosage: UNK
  5. DOXORUBICIN HCL [Interacting]
     Active Substance: DOXORUBICIN HYDROCHLORIDE
     Indication: DIFFUSE LARGE B-CELL LYMPHOMA
     Dosage: UNK
  6. RITONAVIR. [Interacting]
     Active Substance: RITONAVIR
     Indication: HIV INFECTION
     Dosage: UNK
  7. ZIDOVUDINE. [Interacting]
     Active Substance: ZIDOVUDINE
     Indication: HIV INFECTION
     Dosage: UNK
  8. ATAZANAVIR SULFATE. [Interacting]
     Active Substance: ATAZANAVIR SULFATE
     Indication: HIV INFECTION
     Dosage: UNK
  9. INDINAVIR SULFATE [Interacting]
     Active Substance: INDINAVIR SULFATE
     Indication: HIV INFECTION
     Dosage: UNK
  10. PREDNISONE. [Interacting]
     Active Substance: PREDNISONE
     Indication: DIFFUSE LARGE B-CELL LYMPHOMA
     Dosage: UNK
  11. RALTEGRAVIR. [Interacting]
     Active Substance: RALTEGRAVIR
     Indication: HIV INFECTION
     Dosage: UNK
  12. DARUNAVIR [Interacting]
     Active Substance: DARUNAVIR
     Indication: HIV INFECTION
     Dosage: UNK
  13. RITUXIMAB. [Interacting]
     Active Substance: RITUXIMAB
     Indication: DIFFUSE LARGE B-CELL LYMPHOMA
     Dosage: UNK
  14. STAVUDINE. [Interacting]
     Active Substance: STAVUDINE
     Indication: HIV INFECTION
     Dosage: UNK
  15. DIDANOSINE. [Interacting]
     Active Substance: DIDANOSINE
     Indication: HIV INFECTION
     Dosage: UNK
  16. LOPINAVIR + RITONAVIR [Interacting]
     Active Substance: LOPINAVIR\RITONAVIR
     Indication: HIV INFECTION
     Dosage: UNK
  17. NEVIRAPINE. [Interacting]
     Active Substance: NEVIRAPINE
     Indication: HIV INFECTION
     Dosage: UNK

REACTIONS (17)
  - Tumour lysis syndrome [Unknown]
  - Aspartate aminotransferase increased [Unknown]
  - Drug interaction [Unknown]
  - Seizure [Unknown]
  - Anaemia [Unknown]
  - Febrile neutropenia [Unknown]
  - Myalgia [Unknown]
  - Pulmonary embolism [Unknown]
  - Blood bilirubin increased [Unknown]
  - Cerebral ischaemia [Unknown]
  - Cystitis noninfective [Unknown]
  - Alanine aminotransferase increased [Unknown]
  - Infection [Unknown]
  - Haematuria [Unknown]
  - Thrombosis [Unknown]
  - Acute kidney injury [Unknown]
  - Vomiting [Unknown]
